FAERS Safety Report 22268214 (Version 1)
Quarter: 2023Q2

REPORT INFORMATION
  Report Type: Spontaneous
  Country: AU (occurrence: AU)
  Receive Date: 20230430
  Receipt Date: 20230430
  Transmission Date: 20230721
  Serious: No
  Sender: FDA-Public Use
  Company Number: AU-PFIZER INC-202300167018

PATIENT

DRUGS (1)
  1. PAXLOVID [Suspect]
     Active Substance: NIRMATRELVIR\RITONAVIR
     Indication: COVID-19 treatment
     Dosage: [PF-07321332 150 MG]/[RITONAVIR 100 MG]; 2X/DAY

REACTIONS (1)
  - Incorrect dose administered [Unknown]
